FAERS Safety Report 7142528-X (Version None)
Quarter: 2010Q4

REPORT INFORMATION
  Report Type: 
  Country: None (occurrence: None)
  Receive Date: 20101207
  Receipt Date: 20101130
  Transmission Date: 20110411
  Serious: Yes (Death)
  Sender: FDA-Public Use
  Company Number: PHHY2010SI81825

PATIENT
  Sex: Male
  Weight: 72 kg

DRUGS (5)
  1. ZOLEDRONATE T29581+ [Suspect]
     Indication: PROPHYLAXIS
     Dosage: 4 MG EVERY 28 DAYS
     Route: 042
     Dates: start: 20081214
  2. DURAGESIC-100 [Concomitant]
     Dosage: UNK
     Dates: start: 20081001
  3. KETONAL [Concomitant]
  4. ZOLADEX [Concomitant]
     Dosage: UNK
     Dates: start: 20061114
  5. CASODEX [Concomitant]
     Dosage: UNK
     Dates: start: 20061114

REACTIONS (6)
  - ANAEMIA [None]
  - ASPARTATE AMINOTRANSFERASE INCREASED [None]
  - BLOOD CALCIUM DECREASED [None]
  - BLOOD CREATININE INCREASED [None]
  - DEATH [None]
  - PROSTATIC SPECIFIC ANTIGEN INCREASED [None]
